FAERS Safety Report 7246787-4 (Version None)
Quarter: 2011Q1

REPORT INFORMATION
  Report Type: 
  Country: None (occurrence: None)
  Receive Date: 20110127
  Receipt Date: 20110124
  Transmission Date: 20110831
  Serious: Yes (Hospitalization, Other)
  Sender: FDA-Public Use
  Company Number: US-ABBOTT-11P-163-0700242-00

PATIENT
  Sex: Female
  Weight: 58.112 kg

DRUGS (9)
  1. NAPROXEN [Concomitant]
     Indication: RHEUMATOID ARTHRITIS
     Route: 048
     Dates: end: 20110101
  2. FORTEO [Concomitant]
     Indication: OSTEOPOROSIS
     Route: 058
  3. HUMIRA [Suspect]
     Indication: RHEUMATOID ARTHRITIS
     Route: 048
     Dates: start: 20070101
  4. DARVOCET [Concomitant]
     Indication: BREAKTHROUGH PAIN
  5. NAPROXEN [Concomitant]
     Route: 048
  6. CITRACAL PLUS D [Concomitant]
     Indication: MINERAL SUPPLEMENTATION
     Route: 048
  7. METHOTREXATE [Concomitant]
     Indication: RHEUMATOID ARTHRITIS
     Route: 048
  8. FOLIC ACID [Concomitant]
     Indication: VITAMIN SUPPLEMENTATION
     Dosage: NOT TAKEN ON MTX DAYS
     Route: 048
  9. MULTI-VITAMIN [Concomitant]
     Indication: VITAMIN SUPPLEMENTATION
     Route: 048

REACTIONS (5)
  - INJECTION SITE PRURITUS [None]
  - INJECTION SITE VESICLES [None]
  - WRONG TECHNIQUE IN DRUG USAGE PROCESS [None]
  - SPINAL OSTEOARTHRITIS [None]
  - FOOT DEFORMITY [None]
